FAERS Safety Report 13996987 (Version 1)
Quarter: 2017Q3

REPORT INFORMATION
  Report Type: Spontaneous
  Country: GB (occurrence: GB)
  Receive Date: 20170921
  Receipt Date: 20170921
  Transmission Date: 20171128
  Serious: Yes (Hospitalization)
  Sender: FDA-Public Use
  Company Number: GB-BECTON DICKINSON-2017BDN00199

PATIENT
  Age: 59 Year
  Sex: Female

DRUGS (1)
  1. CHLORAPREP [Suspect]
     Active Substance: CHLORHEXIDINE GLUCONATE\ISOPROPYL ALCOHOL
     Indication: INFECTION PROPHYLAXIS
     Dosage: UNK, ONCE TO SPINE
     Route: 061
     Dates: start: 20170606, end: 20170606

REACTIONS (4)
  - Procedural complication [Recovered/Resolved]
  - Wrong technique in product usage process [Recovered/Resolved]
  - Staphylococcal bacteraemia [Unknown]
  - Accident [Recovered/Resolved]

NARRATIVE: CASE EVENT DATE: 2017
